FAERS Safety Report 26073571 (Version 1)
Quarter: 2025Q4

REPORT INFORMATION
  Report Type: Spontaneous
  Country: US (occurrence: US)
  Receive Date: 20251121
  Receipt Date: 20251121
  Transmission Date: 20260117
  Serious: No
  Sender: ALVOGEN
  Company Number: US-ALVOGEN-2024095634

PATIENT
  Sex: Male

DRUGS (2)
  1. TERIPARATIDE [Suspect]
     Active Substance: TERIPARATIDE
     Indication: Product used for unknown indication
     Dosage: SINCE 6-8 MONTHS
     Dates: start: 2024
  2. TERIPARATIDE [Suspect]
     Active Substance: TERIPARATIDE
     Indication: Product used for unknown indication
     Dosage: EXPIRY DATE: UU-JUN-2025?OPENED THE NEW MEDICATION BOX LAST NIGHT

REACTIONS (3)
  - Device malfunction [Unknown]
  - Device operational issue [Unknown]
  - Drug dose omission by device [Unknown]

NARRATIVE: CASE EVENT DATE: 20241003
